FAERS Safety Report 5332726-X (Version None)
Quarter: 2007Q2

REPORT INFORMATION
  Report Type: 
  Country: None (occurrence: None)
  Receive Date: 20070521
  Receipt Date: 20070511
  Transmission Date: 20071010
  Serious: Yes (Other)
  Sender: FDA-Public Use
  Company Number: 2007SP005270

PATIENT
  Sex: Female

DRUGS (1)
  1. INTRON A [Suspect]
     Indication: MALIGNANT MELANOMA

REACTIONS (1)
  - COGNITIVE DISORDER [None]
